FAERS Safety Report 11704320 (Version 1)
Quarter: 2015Q4

REPORT INFORMATION
  Report Type: Spontaneous
  Country: IT (occurrence: None)
  Receive Date: 20151105
  Receipt Date: 20151105
  Transmission Date: 20160304
  Serious: Yes (Life-Threatening)
  Sender: FDA-Public Use
  Company Number: None

PATIENT
  Age: 20 Year
  Sex: Female
  Weight: 48 kg

DRUGS (5)
  1. LAMIVUDINE/TENOFOVIR [Suspect]
     Active Substance: LAMIVUDINE\TENOFOVIR
  2. MULTI VITAMINS [Concomitant]
  3. DISOPROXIL FUMARATE [Concomitant]
  4. TEA [Concomitant]
     Active Substance: TEA LEAF
  5. LOPINAVIR/RITONAVIR [Suspect]
     Active Substance: LOPINAVIR\RITONAVIR
     Indication: HIV INFECTION
     Dosage: 2 PILLS
     Route: 048

REACTIONS (8)
  - Wound [None]
  - Anal infection [None]
  - Pain [None]
  - Malaise [None]
  - Vaginal infection [None]
  - Flatulence [None]
  - Vomiting [None]
  - Diarrhoea [None]

NARRATIVE: CASE EVENT DATE: 20151031
